FAERS Safety Report 17529456 (Version 3)
Quarter: 2020Q2

REPORT INFORMATION
  Report Type: Spontaneous
  Country: US (occurrence: US)
  Receive Date: 20200311
  Receipt Date: 20200402
  Transmission Date: 20200713
  Serious: Yes (Disabling, Other)
  Sender: FDA-Public Use
  Company Number: US-SA-2020SA059402

PATIENT
  Age: 68 Year
  Sex: Male

DRUGS (1)
  1. LANTUS SOLOSTAR [Suspect]
     Active Substance: INSULIN GLARGINE
     Indication: TYPE 2 DIABETES MELLITUS
     Dosage: 35 IU, BID (IN MORNING AND NIGHT)
     Route: 065

REACTIONS (4)
  - Disability [Unknown]
  - Visual impairment [Unknown]
  - Basal cell carcinoma [Unknown]
  - Inappropriate schedule of product administration [Unknown]
